FAERS Safety Report 7574843-X (Version None)
Quarter: 2011Q2

REPORT INFORMATION
  Report Type: 
  Country: None (occurrence: None)
  Receive Date: 20110627
  Receipt Date: 20110603
  Transmission Date: 20111010
  Serious: Yes (Hospitalization)
  Sender: FDA-Public Use
  Company Number: US-BAYER-201040096NA

PATIENT
  Age: 31 Year
  Sex: Female
  Weight: 129 kg

DRUGS (5)
  1. BACTRIN [Concomitant]
     Route: 048
  2. NAPROXEN (ALEVE) [Concomitant]
     Dosage: UNK
     Dates: start: 20030301, end: 20080331
  3. MEDROXYPROGESTERONE [Concomitant]
     Dosage: 10 MG, UNK
     Route: 048
     Dates: start: 20081002, end: 20081012
  4. IBUPROFEN [Concomitant]
     Dosage: UNK
     Dates: start: 20020101, end: 20080101
  5. YAZ [Suspect]
     Indication: CONTRACEPTION
     Dosage: UNK
     Dates: start: 20080922, end: 20081024

REACTIONS (16)
  - CEREBROVASCULAR ACCIDENT [None]
  - HEADACHE [None]
  - EYELID PTOSIS [None]
  - MENTAL DISABILITY [None]
  - VOMITING [None]
  - HYPOAESTHESIA [None]
  - GENERAL PHYSICAL HEALTH DETERIORATION [None]
  - MOUTH HAEMORRHAGE [None]
  - PAIN [None]
  - NAUSEA [None]
  - DEPRESSION [None]
  - HEMIPARESIS [None]
  - AMNESIA [None]
  - MENTAL DISORDER [None]
  - CHEST PAIN [None]
  - INTRACRANIAL PRESSURE INCREASED [None]
